FAERS Safety Report 11590437 (Version 1)
Quarter: 2015Q4

REPORT INFORMATION
  Report Type: Spontaneous
  Country: US (occurrence: None)
  Receive Date: 20151002
  Receipt Date: 20151002
  Transmission Date: 20160304
  Serious: Yes (Other)
  Sender: FDA-Public Use
  Company Number: US-MDT-ADR-2015-01897

PATIENT
  Age: 15 Year
  Sex: Male

DRUGS (1)
  1. COMPOUNDED BACLOFEN INTRATHECAL [Suspect]
     Active Substance: BACLOFEN
     Indication: MUSCLE SPASTICITY

REACTIONS (6)
  - Urinary retention [None]
  - Cerebrospinal fluid leakage [None]
  - Pain [None]
  - Overdose [None]
  - Thrombosis [None]
  - Therapeutic response decreased [None]
